FAERS Safety Report 15591956 (Version 1)
Quarter: 2018Q4

REPORT INFORMATION
  Report Type: Report from Study
  Country: GH (occurrence: GH)
  Receive Date: 20181106
  Receipt Date: 20181106
  Transmission Date: 20190205
  Serious: Yes (Other)
  Sender: FDA-Public Use
  Company Number: GH-GILEAD-2018-0372669

PATIENT

DRUGS (3)
  1. TENOFOVIR DISOPROXIL FUMARATE. [Suspect]
     Active Substance: TENOFOVIR DISOPROXIL FUMARATE
     Indication: HIV INFECTION
     Dosage: UNK
     Route: 065
  2. 3TC [Concomitant]
     Active Substance: LAMIVUDINE
  3. EFAVIRENZ. [Concomitant]
     Active Substance: EFAVIRENZ

REACTIONS (2)
  - Virologic failure [Unknown]
  - Genotype drug resistance test positive [Unknown]
